FAERS Safety Report 26111663 (Version 2)
Quarter: 2025Q4

REPORT INFORMATION
  Report Type: Spontaneous
  Country: CO (occurrence: CO)
  Receive Date: 20251202
  Receipt Date: 20251210
  Transmission Date: 20260118
  Serious: Yes (Other)
  Sender: REGENERON
  Company Number: CO-BAYER-2025A158184

PATIENT
  Sex: Female

DRUGS (1)
  1. EYLEA [Suspect]
     Active Substance: AFLIBERCEPT
     Indication: Age-related macular degeneration
     Dosage: 40 MG, Q1MON, SOLUTION FOR INJECTION, 40 MG/ML
     Route: 031
     Dates: start: 20221125

REACTIONS (2)
  - Blindness [Unknown]
  - Eye pain [Unknown]

NARRATIVE: CASE EVENT DATE: 20221125
